FAERS Safety Report 8350549 (Version 6)
Quarter: 2020Q3

REPORT INFORMATION
  Report Type: Report from Study
  Country: US (occurrence: US)
  Receive Date: 20120124
  Receipt Date: 20120215
  Transmission Date: 20201104
  Serious: Yes (Other)
  Sender: FDA-Public Use
  Company Number: US-JNJFOC-20120108719

PATIENT
  Age: 30 Year
  Sex: Male
  Weight: 64.86 kg

DRUGS (16)
  1. PLAQUENIL [Concomitant]
     Active Substance: HYDROXYCHLOROQUINE SULFATE
     Indication: RHEUMATOID ARTHRITIS
     Route: 065
     Dates: start: 2008
  2. CISAPRIDE [Suspect]
     Active Substance: CISAPRIDE
     Indication: GASTROOESOPHAGEAL REFLUX DISEASE
     Dosage: STOP TIME: 19:30
     Route: 048
     Dates: start: 20001211, end: 20120122
  3. CISAPRIDE [Suspect]
     Active Substance: CISAPRIDE
     Dosage: STOP TIME: 19:30
     Route: 048
     Dates: start: 20001211, end: 20120122
  4. METOCLOPRAMIDE. [Concomitant]
     Active Substance: METOCLOPRAMIDE
     Indication: GASTROOESOPHAGEAL REFLUX DISEASE
     Dosage: HS
     Route: 065
     Dates: start: 201008, end: 20110710
  5. METOCLOPRAMIDE. [Concomitant]
     Active Substance: METOCLOPRAMIDE
     Dosage: HOURLY
     Route: 065
     Dates: start: 20110711
  6. ZYRTEC?D [Concomitant]
     Active Substance: CETIRIZINE HYDROCHLORIDE\PSEUDOEPHEDRINE HYDROCHLORIDE
     Indication: MULTIPLE ALLERGIES
     Route: 065
     Dates: start: 201102
  7. MISOPROSTOL. [Concomitant]
     Active Substance: MISOPROSTOL
     Indication: CONSTIPATION
     Route: 065
     Dates: start: 20110711, end: 20120115
  8. CITALOPRAM [Concomitant]
     Active Substance: CITALOPRAM HYDROBROMIDE
     Indication: DEPRESSION
     Route: 065
     Dates: start: 201007
  9. CISAPRIDE [Suspect]
     Active Substance: CISAPRIDE
     Indication: GASTROINTESTINAL MOTILITY DISORDER
     Dosage: SUNDAY 09:00 AM
     Route: 048
     Dates: start: 20120212
  10. CISAPRIDE [Suspect]
     Active Substance: CISAPRIDE
     Dosage: SUNDAY 09:00 AM
     Route: 048
     Dates: start: 20120212
  11. TEMAZEPAM. [Concomitant]
     Active Substance: TEMAZEPAM
     Indication: INSOMNIA
     Route: 065
     Dates: start: 20110615
  12. CELEBREX [Concomitant]
     Active Substance: CELECOXIB
     Indication: ARTHRITIS
     Route: 065
     Dates: start: 20020110
  13. METHOTREXATE. [Concomitant]
     Active Substance: METHOTREXATE
     Indication: RHEUMATOID ARTHRITIS
     Route: 048
     Dates: start: 20080602
  14. FOLIC ACID. [Concomitant]
     Active Substance: FOLIC ACID
     Indication: ROUTINE HEALTH MAINTENANCE
     Route: 065
     Dates: start: 201102
  15. ZANTAC [Concomitant]
     Active Substance: RANITIDINE HYDROCHLORIDE
     Indication: GASTROOESOPHAGEAL REFLUX DISEASE
     Dosage: 1?2 TABLETS AT HS
     Route: 065
     Dates: start: 20110711, end: 20120115
  16. WELLBUTRIN [Concomitant]
     Active Substance: BUPROPION HYDROCHLORIDE
     Indication: DEPRESSION
     Route: 065
     Dates: start: 20040316

REACTIONS (1)
  - Electrocardiogram QT prolonged [Recovered/Resolved]

NARRATIVE: CASE EVENT DATE: 20120112
